FAERS Safety Report 8476244-9 (Version None)
Quarter: 2012Q2

REPORT INFORMATION
  Report Type: 
  Country: None (occurrence: None)
  Receive Date: 20120628
  Receipt Date: 20120620
  Transmission Date: 20120825
  Serious: Yes (Hospitalization)
  Sender: FDA-Public Use
  Company Number: US-ABBOTT-11P-163-0842949-00

PATIENT
  Sex: Female
  Weight: 74.456 kg

DRUGS (4)
  1. METHOTREXATE [Concomitant]
     Indication: RHEUMATOID ARTHRITIS
     Route: 050
     Dates: start: 20030101, end: 20110801
  2. METHOTREXATE [Concomitant]
     Dates: start: 20111201
  3. HUMIRA [Suspect]
     Dates: start: 20111201
  4. HUMIRA [Suspect]
     Indication: RHEUMATOID ARTHRITIS
     Dates: start: 20030101, end: 20110801

REACTIONS (4)
  - CARTILAGE ATROPHY [None]
  - OSTEOARTHRITIS [None]
  - ARTHRALGIA [None]
  - ARTHRITIS [None]
